FAERS Safety Report 13523295 (Version 2)
Quarter: 2017Q2

REPORT INFORMATION
  Report Type: Report from Study
  Country: CA (occurrence: CA)
  Receive Date: 20170508
  Receipt Date: 20170518
  Transmission Date: 20170830
  Serious: Yes (Other)
  Sender: FDA-Public Use
  Company Number: CA-AMGEN-CANSL2017067065

PATIENT
  Age: 83 Year
  Sex: Female
  Weight: 74.38 kg

DRUGS (3)
  1. ASA [Concomitant]
     Active Substance: ASPIRIN
     Dosage: 81 MG, QD
     Route: 048
  2. DIOVAN [Concomitant]
     Active Substance: VALSARTAN
     Dosage: 80 MG, QD
     Route: 048
  3. PROLIA [Suspect]
     Active Substance: DENOSUMAB
     Indication: PRODUCT USED FOR UNKNOWN INDICATION
     Dosage: 60 MG/ML, Q6MO
     Route: 058
     Dates: start: 20150504

REACTIONS (6)
  - Arthropathy [Unknown]
  - Tooth extraction [Unknown]
  - Off label use [Unknown]
  - Dental caries [Unknown]
  - Gingival recession [Unknown]
  - Tooth disorder [Unknown]

NARRATIVE: CASE EVENT DATE: 201704
